FAERS Safety Report 15759284 (Version 1)
Quarter: 2018Q4

REPORT INFORMATION
  Report Type: Spontaneous
  Country: BE (occurrence: BE)
  Receive Date: 20181226
  Receipt Date: 20181226
  Transmission Date: 20190205
  Serious: Yes (Other)
  Sender: FDA-Public Use
  Company Number: BE-AMGEN-BELSP2018181607

PATIENT
  Age: 46 Year
  Sex: Male

DRUGS (8)
  1. ACICLOVIR [Concomitant]
     Active Substance: ACYCLOVIR
     Indication: PROPHYLAXIS
     Dosage: UNK
  2. ACICLOVIR [Concomitant]
     Active Substance: ACYCLOVIR
     Indication: ACUTE FEBRILE NEUTROPHILIC DERMATOSIS
  3. NEULASTA [Suspect]
     Active Substance: PEGFILGRASTIM
     Indication: NEUTROPENIA
     Dosage: 6 MG, SINGLE DOSE
     Route: 058
  4. FLUCONAZOLE. [Concomitant]
     Active Substance: FLUCONAZOLE
     Indication: PROPHYLAXIS
     Dosage: UNK
  5. FLUCONAZOLE. [Concomitant]
     Active Substance: FLUCONAZOLE
     Indication: ACUTE FEBRILE NEUTROPHILIC DERMATOSIS
  6. CYTARABINE. [Concomitant]
     Active Substance: CYTARABINE
     Indication: MYELODYSPLASTIC SYNDROME
     Dosage: UNK
  7. CIPROFLOXACIN. [Concomitant]
     Active Substance: CIPROFLOXACIN
     Indication: PROPHYLAXIS
     Dosage: UNK
  8. DAUNORUBICIN [Concomitant]
     Active Substance: DAUNORUBICIN
     Indication: MYELODYSPLASTIC SYNDROME
     Dosage: UNK

REACTIONS (3)
  - Pancytopenia [Unknown]
  - Acute febrile neutrophilic dermatosis [Recovered/Resolved]
  - Off label use [Unknown]
